FAERS Safety Report 24342102 (Version 1)
Quarter: 2024Q3

REPORT INFORMATION
  Report Type: Spontaneous
  Country: CN (occurrence: CN)
  Receive Date: 20240920
  Receipt Date: 20240920
  Transmission Date: 20241017
  Serious: Yes (Life-Threatening)
  Sender: SHENZHEN TECHDOW PHARMACEUTICAL
  Company Number: CN-91440300279544901A-J2024HPR000564

PATIENT
  Age: 77 Year
  Sex: Male

DRUGS (1)
  1. ENOXAPARIN SODIUM [Suspect]
     Active Substance: ENOXAPARIN SODIUM
     Indication: Fibrin D dimer increased
     Dosage: 0.4ML,QD
     Dates: start: 20240825, end: 20240830

REACTIONS (3)
  - Haemoptysis [Recovered/Resolved]
  - Blood pressure decreased [Recovered/Resolved]
  - Oxygen saturation decreased [Recovered/Resolved]

NARRATIVE: CASE EVENT DATE: 20240830
